FAERS Safety Report 9830437 (Version 1)
Quarter: 2014Q1

REPORT INFORMATION
  Report Type: Spontaneous
  Country: CO (occurrence: CO)
  Receive Date: 20140120
  Receipt Date: 20140120
  Transmission Date: 20141002
  Serious: Yes (Other)
  Sender: FDA-Public Use
  Company Number: CO-JNJFOC-20140104112

PATIENT
  Sex: Male
  Weight: 64 kg

DRUGS (2)
  1. RISPERDAL [Suspect]
     Indication: MENTAL RETARDATION
     Dosage: 3 ML IN THE MORNING AND 2 ML IN THE NIGHT
     Route: 048
     Dates: start: 2011
  2. RISPERDAL [Suspect]
     Indication: SCHIZOPHRENIA
     Dosage: 3 ML IN THE MORNING AND 2 ML IN THE NIGHT
     Route: 048
     Dates: start: 2011

REACTIONS (3)
  - Aggression [Unknown]
  - Drug dose omission [Unknown]
  - Off label use [Unknown]
